FAERS Safety Report 8384475-1 (Version None)
Quarter: 2012Q2

REPORT INFORMATION
  Report Type: 
  Country: None (occurrence: None)
  Receive Date: 20120524
  Receipt Date: 20120516
  Transmission Date: 20120825
  Serious: Yes (Hospitalization)
  Sender: FDA-Public Use
  Company Number: JP-VERTEX PHARMACEUTICALS INC.-AE-2012-005295

PATIENT
  Age: 36 Year
  Sex: Female

DRUGS (9)
  1. RIBAVARIN [Concomitant]
     Route: 048
     Dates: start: 20120316, end: 20120319
  2. RIBAVARIN [Concomitant]
     Indication: HEPATITIS C
     Route: 048
     Dates: start: 20120113, end: 20120301
  3. RIBAVARIN [Concomitant]
     Route: 048
     Dates: start: 20120302, end: 20120315
  4. HIRUDOID [Concomitant]
     Route: 051
     Dates: start: 20120113
  5. LOXONIN [Concomitant]
     Route: 048
     Dates: start: 20120113, end: 20120123
  6. RIBAVARIN [Concomitant]
     Route: 048
     Dates: start: 20120330, end: 20120405
  7. PEGINTERFERON ALFA-2B [Concomitant]
     Indication: HEPATITIS C
     Route: 051
     Dates: start: 20120113
  8. TELAVIC (TELAPREVIR) [Suspect]
     Indication: HEPATITIS C
     Route: 048
     Dates: start: 20120113, end: 20120406
  9. RIBAVARIN [Concomitant]
     Route: 048
     Dates: start: 20120406

REACTIONS (3)
  - HAEMOGLOBIN DECREASED [None]
  - WHITE BLOOD CELL COUNT DECREASED [None]
  - ORTHOSTATIC HYPOTENSION [None]
